FAERS Safety Report 23581760 (Version 2)
Quarter: 2025Q1

REPORT INFORMATION
  Report Type: Report from Study
  Country: CA (occurrence: CA)
  Receive Date: 20240229
  Receipt Date: 20250122
  Transmission Date: 20250408
  Serious: Yes (Other)
  Sender: PFIZER
  Company Number: CA-PFIZER INC-202400050844

PATIENT
  Age: 51 Year
  Sex: Female
  Weight: 99 kg

DRUGS (16)
  1. BOSUTINIB [Suspect]
     Active Substance: BOSUTINIB
     Dosage: 100 MG, 1X/DAY
     Route: 048
  2. BOSUTINIB [Suspect]
     Active Substance: BOSUTINIB
     Dosage: 400 MG, 1X/DAY
     Route: 048
  3. BOSUTINIB [Suspect]
     Active Substance: BOSUTINIB
     Dosage: 70 MG, 1X/DAY
     Route: 048
  4. DASATINIB [Suspect]
     Active Substance: DASATINIB
     Dosage: 70 MG, 1X/DAY
     Route: 065
  5. DASATINIB [Suspect]
     Active Substance: DASATINIB
     Dosage: 70 MG, 1X/DAY
     Route: 048
  6. IMATINIB MESYLATE [Suspect]
     Active Substance: IMATINIB MESYLATE
     Dosage: 400 MG, 1X/DAY
     Route: 065
  7. NILOTINIB [Suspect]
     Active Substance: NILOTINIB
     Dosage: 300 MG, 2X/DAY
     Route: 048
  8. ASCIMINIB [Suspect]
     Active Substance: ASCIMINIB
     Indication: Chronic myeloid leukaemia
     Dosage: 40 MG, 2X/DAY
     Route: 048
  9. ACRIVASTINE [Concomitant]
     Active Substance: ACRIVASTINE
     Dosage: 25 MG, 1X/DAY
     Route: 065
  10. ALLOPURINOL [Concomitant]
     Active Substance: ALLOPURINOL
     Indication: Rash maculo-papular
     Route: 065
  11. LASIX [Concomitant]
     Active Substance: FUROSEMIDE
     Dosage: 40 MG, 1X/DAY
     Route: 065
  12. LASIX [Concomitant]
     Active Substance: FUROSEMIDE
     Dosage: 20 MG, 1X/DAY
     Route: 065
  13. LEVOTHYROXINE SODIUM [Concomitant]
     Active Substance: LEVOTHYROXINE SODIUM
     Route: 065
  14. PANTOPRAZOLE SODIUM [Concomitant]
     Active Substance: PANTOPRAZOLE SODIUM
     Indication: Gastrooesophageal reflux disease
     Dosage: 40 MG, 1X/DAY
     Route: 048
  15. PREDNISONE [Concomitant]
     Active Substance: PREDNISONE
     Route: 065
  16. SYNTHROID [Concomitant]
     Active Substance: LEVOTHYROXINE SODIUM
     Dosage: 0.112 MG, 1X/DAY
     Route: 065

REACTIONS (20)
  - Asthenia [Unknown]
  - Blood bilirubin increased [Unknown]
  - Bone pain [Unknown]
  - Dyspnoea [Unknown]
  - Headache [Unknown]
  - Hypertransaminasaemia [Unknown]
  - Lip swelling [Unknown]
  - Oedema [Unknown]
  - Pericardial effusion [Unknown]
  - Pleural effusion [Unknown]
  - Rash [Unknown]
  - Seronegative arthritis [Unknown]
  - Urticaria [Unknown]
  - Abdominal pain [Unknown]
  - C-reactive protein increased [Unknown]
  - Dyspepsia [Unknown]
  - Early satiety [Unknown]
  - Malaise [Unknown]
  - Nausea [Unknown]
  - Platelet count abnormal [Unknown]
